FAERS Safety Report 6887775-7 (Version None)
Quarter: 2010Q3

REPORT INFORMATION
  Report Type: 
  Country: None (occurrence: None)
  Receive Date: 20100730
  Receipt Date: 20100720
  Transmission Date: 20110219
  Serious: Yes (Disabling, Other)
  Sender: FDA-Public Use
  Company Number: PA-ROCHE-716550

PATIENT
  Age: 24 Year
  Sex: Female

DRUGS (2)
  1. ISOTRETINOIN [Suspect]
     Indication: ACNE
     Dosage: FREQUENCY: ONCE A DAY
     Route: 048
     Dates: start: 20100514, end: 20100526
  2. EUTIROX [Concomitant]
     Dosage: FREQUENCY: ONCE A DAY
     Route: 048
     Dates: start: 20050101

REACTIONS (5)
  - ANXIETY [None]
  - DEPRESSION [None]
  - INSOMNIA [None]
  - MIGRAINE [None]
  - PANIC ATTACK [None]
